FAERS Safety Report 8023072-4 (Version None)
Quarter: 2012Q1

REPORT INFORMATION
  Report Type: 
  Country: None (occurrence: None)
  Receive Date: 20120104
  Receipt Date: 20120103
  Transmission Date: 20120608
  Serious: Yes (Death, Hospitalization, Other)
  Sender: FDA-Public Use
  Company Number: PHEH2008US09962

PATIENT
  Sex: Female

DRUGS (31)
  1. PEPCID [Concomitant]
     Dosage: UNK
  2. ACETAMINOPHEN [Concomitant]
  3. ADRIAMYCIN PFS [Concomitant]
     Dosage: UNK
  4. TAMOXIFEN CITRATE [Concomitant]
     Dosage: UNK
  5. AVASTIN [Concomitant]
     Dosage: UNK
  6. CEFAZOLIN [Concomitant]
  7. CYTOXAN [Concomitant]
     Dosage: UNK
  8. DECADRON [Concomitant]
     Dosage: UNK
  9. BENADRYL [Concomitant]
  10. HYDRODIURIL [Concomitant]
     Dosage: UNK
  11. CODEINE [Concomitant]
  12. MULTI-VITAMINS [Concomitant]
  13. HYDROMORPHONE HCL [Concomitant]
  14. ZOLPIDEM [Concomitant]
  15. ZOMETA [Suspect]
  16. DEXAMETHASONE [Concomitant]
  17. CLINDAMYCIN [Concomitant]
  18. KETOROLAC TROMETHAMINE [Concomitant]
  19. ENOXAPARIN [Concomitant]
  20. ALOXI [Concomitant]
     Dosage: UNK
  21. RADIATION THERAPY [Concomitant]
     Dosage: UNK
  22. ACETAMINOPHEN [Concomitant]
  23. LOVENOX [Concomitant]
  24. ZOFRAN [Concomitant]
  25. CALCIUM ACETATE [Concomitant]
  26. THIOPENTAL SODIUM [Concomitant]
     Dosage: UNK
  27. METHOTREXATE [Concomitant]
     Dosage: UNK
  28. NAVELBINE [Concomitant]
     Dosage: UNK
  29. ONDASETRON [Concomitant]
  30. CEPHALEXIN [Concomitant]
  31. KEFLEX [Concomitant]

REACTIONS (61)
  - HYDROCEPHALUS [None]
  - METASTASES TO BONE [None]
  - PAIN [None]
  - UPPER RESPIRATORY TRACT INFECTION [None]
  - NASOPHARYNGITIS [None]
  - PYREXIA [None]
  - VOMITING [None]
  - UNRESPONSIVE TO STIMULI [None]
  - JOINT SWELLING [None]
  - BLOOD LACTATE DEHYDROGENASE INCREASED [None]
  - HEPATIC HAEMORRHAGE [None]
  - SPONDYLOLYSIS [None]
  - CHILLS [None]
  - METASTASES TO MENINGES [None]
  - MENINGITIS [None]
  - NEOPLASM MALIGNANT [None]
  - GENERAL PHYSICAL HEALTH DETERIORATION [None]
  - ANXIETY [None]
  - OSTEOPENIA [None]
  - SPUTUM DISCOLOURED [None]
  - ENCEPHALOMYELITIS [None]
  - CONTUSION [None]
  - NEOPLASM PROGRESSION [None]
  - DIZZINESS [None]
  - CONFUSIONAL STATE [None]
  - DEPRESSED LEVEL OF CONSCIOUSNESS [None]
  - BRONCHITIS [None]
  - PULMONARY FIBROSIS [None]
  - ATELECTASIS [None]
  - APHASIA [None]
  - MENTAL STATUS CHANGES [None]
  - URINARY INCONTINENCE [None]
  - BACK PAIN [None]
  - BLOOD ALKALINE PHOSPHATASE INCREASED [None]
  - BRONCHIECTASIS [None]
  - PNEUMOTHORAX [None]
  - EMPHYSEMA [None]
  - METASTASES TO CENTRAL NERVOUS SYSTEM [None]
  - ANAEMIA [None]
  - INSOMNIA [None]
  - PLEURAL EFFUSION [None]
  - DYSARTHRIA [None]
  - GAIT DISTURBANCE [None]
  - CARCINOEMBRYONIC ANTIGEN INCREASED [None]
  - BLOOD GLUCOSE INCREASED [None]
  - HEPATIC CYST [None]
  - PULMONARY CONGESTION [None]
  - THROMBOCYTOPENIA [None]
  - MUSCULAR WEAKNESS [None]
  - VISION BLURRED [None]
  - METASTASES TO LIVER [None]
  - HEADACHE [None]
  - OSTEONECROSIS OF JAW [None]
  - INTERSTITIAL LUNG DISEASE [None]
  - CONSTIPATION [None]
  - LEUKOENCEPHALOPATHY [None]
  - METASTASES TO LUNG [None]
  - DECREASED INTEREST [None]
  - ARTHRALGIA [None]
  - LUNG DISORDER [None]
  - DYSPNOEA [None]
